FAERS Safety Report 5475694-2 (Version None)
Quarter: 2007Q4

REPORT INFORMATION
  Report Type: 
  Country: None (occurrence: None)
  Receive Date: 20071001
  Receipt Date: 20071001
  Transmission Date: 20080405
  Serious: No
  Sender: FDA-Public Use
  Company Number: None

PATIENT
  Sex: Female
  Weight: 100 kg

DRUGS (1)
  1. SODIUM CHLORIDE [Suspect]
     Indication: CELLULITIS
     Dates: start: 20070920, end: 20070924

REACTIONS (1)
  - PHARMACEUTICAL PRODUCT COMPLAINT [None]
